FAERS Safety Report 10224983 (Version 1)
Quarter: 2014Q1

REPORT INFORMATION
  Report Type: Spontaneous
  Country: US (occurrence: None)
  Receive Date: 20140306
  Receipt Date: 20140306
  Transmission Date: 20141002
  Serious: Yes (Hospitalization)
  Sender: FDA-Public Use
  Company Number: 163-21880-13112358

PATIENT
  Age: 79 Year
  Sex: Female
  Weight: 56.7 kg

DRUGS (3)
  1. REVLIMID [Suspect]
     Indication: PLASMA CELL MYELOMA
     Dosage: 10 MG, 21 IN 21 D, PO
     Route: 048
     Dates: start: 201308
  2. COREG(CARVEDILOL) [Concomitant]
  3. DEXAMETHASONE(DEXAMETHASONE)(TABLETS) [Concomitant]

REACTIONS (4)
  - Myocardial infarction [None]
  - Blood pressure decreased [None]
  - Sinusitis [None]
  - Full blood count decreased [None]
